FAERS Safety Report 9291332 (Version 2)
Quarter: 2013Q1

REPORT INFORMATION
  Report Type: Spontaneous
  Country: US (occurrence: None)
  Receive Date: 20121017
  Receipt Date: 20121107
  Transmission Date: 20140127
  Serious: Yes (Hospitalization, Other)
  Sender: FDA-Public Use
  Company Number: 2012SP002755

PATIENT
  Age: 69 Year
  Sex: Female
  Weight: 68.03 kg

DRUGS (9)
  1. VANCOMYCIN [Suspect]
     Indication: BACILLUS INFECTION
     Dates: start: 2012, end: 2012
  2. VANCOMYCIN [Suspect]
     Indication: STAPHYLOCOCCAL INFECTION
     Dates: start: 2012, end: 2012
  3. GELFOAM [Suspect]
     Indication: SPINAL LAMINECTOMY
     Dates: start: 20120323, end: 20120328
  4. PREVACID [Concomitant]
  5. PREMARIN [Concomitant]
  6. THYROXINE [Concomitant]
  7. MULTIVITAMINS [Concomitant]
  8. CALCIUM [Concomitant]
  9. THROMBIN [Concomitant]

REACTIONS (11)
  - Renal impairment [None]
  - Staphylococcal infection [None]
  - Bacillus infection [None]
  - Abscess [None]
  - Bone disorder [None]
  - Condition aggravated [None]
  - Muscle spasms [None]
  - Muscle spasms [None]
  - Extradural abscess [None]
  - Pain in extremity [None]
  - White blood cell count increased [None]
